FAERS Safety Report 8817623 (Version 1)
Quarter: 2012Q4

REPORT INFORMATION
  Report Type: 
  Country: US (occurrence: US)
  Receive Date: 20121001
  Receipt Date: 20121001
  Transmission Date: 20130627
  Serious: No
  Sender: FDA-Public Use
  Company Number: US-009507513-1209USA008630

PATIENT
  Age: 60 Year
  Sex: Male

DRUGS (3)
  1. PEGINTRON [Suspect]
     Indication: HEPATITIS C
     Dosage: qw(0.4mls of the 120 mcg pen weekly)
     Route: 058
     Dates: start: 20120529, end: 201209
  2. RIBASPHERE [Suspect]
     Dosage: UNK
     Dates: end: 201209
  3. TELAPREVIR [Suspect]
     Dosage: UNK

REACTIONS (1)
  - No therapeutic response [Unknown]
